FAERS Safety Report 21116452 (Version 1)
Quarter: 2022Q3

REPORT INFORMATION
  Report Type: Spontaneous
  Country: CN (occurrence: CN)
  Receive Date: 20220722
  Receipt Date: 20220722
  Transmission Date: 20221027
  Serious: Yes (Other)
  Sender: FDA-Public Use
  Company Number: CN-SUN PHARMACEUTICAL INDUSTRIES LTD-2022R1-345005

PATIENT
  Age: 65 Year
  Sex: Female

DRUGS (2)
  1. ANASTROZOLE [Suspect]
     Active Substance: ANASTROZOLE
     Indication: Chemotherapy
     Dosage: 50 MILLIGRAM, BID
     Route: 048
     Dates: start: 20210511
  2. ABEMACICLIB [Suspect]
     Active Substance: ABEMACICLIB
     Indication: Chemotherapy
     Dosage: 1 MILLIGRAM
     Route: 048
     Dates: start: 20210511

REACTIONS (1)
  - Disease progression [Unknown]
